FAERS Safety Report 8498835-1 (Version None)
Quarter: 2012Q3

REPORT INFORMATION
  Report Type: 
  Country: None (occurrence: None)
  Receive Date: 20120710
  Receipt Date: 20120705
  Transmission Date: 20120928
  Serious: Yes (Hospitalization)
  Sender: FDA-Public Use
  Company Number: US-AMGEN-USASP2012041702

PATIENT
  Age: 72 Year
  Sex: Female

DRUGS (10)
  1. VITAMIN E                          /00110501/ [Concomitant]
  2. VITAMIN B COMPLEX CAP [Concomitant]
  3. DOMPERIDONE [Concomitant]
     Indication: HIATUS HERNIA
  4. ANTIBIOTICS [Concomitant]
     Dates: start: 20120301, end: 20120704
  5. PROLIA [Suspect]
     Indication: OSTEOPOROSIS POSTMENOPAUSAL
     Dates: start: 20120313
  6. AMLODIPINE [Concomitant]
     Dosage: UNK UNK, QD
  7. ASPIRIN [Concomitant]
     Dosage: UNK
  8. COQ10                              /00517201/ [Concomitant]
  9. VITAMIN C                          /00008001/ [Concomitant]
  10. VITAMIN D [Concomitant]
     Dosage: 1 UNK, UNK

REACTIONS (2)
  - COLON OPERATION [None]
  - DIVERTICULITIS [None]
